FAERS Safety Report 16258849 (Version 2)
Quarter: 2019Q2

REPORT INFORMATION
  Report Type: Spontaneous
  Country: PL (occurrence: PL)
  Receive Date: 20190501
  Receipt Date: 20190528
  Transmission Date: 20190711
  Serious: Yes (Death, Other)
  Sender: FDA-Public Use
  Company Number: PL-AUROBINDO-AUR-APL-2019-023489

PATIENT

DRUGS (15)
  1. POTASSIUM [Concomitant]
     Active Substance: POTASSIUM
     Indication: PRODUCT USED FOR UNKNOWN INDICATION
     Dosage: UNK
     Route: 065
  2. AMITRIPTYLINE [Interacting]
     Active Substance: AMITRIPTYLINE
     Indication: CANCER PAIN
  3. FUROSEMIDE. [Interacting]
     Active Substance: FUROSEMIDE
     Indication: OEDEMA PERIPHERAL
     Dosage: UNK, PROPHYLACTIC DOSE
     Route: 065
  4. MORPHINE [Suspect]
     Active Substance: MORPHINE
     Indication: CANCER PAIN
     Dosage: 240 MILLIGRAM, ONCE A DAY
     Route: 048
  5. MORPHINE [Interacting]
     Active Substance: MORPHINE
     Indication: PAIN
     Dosage: UNK
     Route: 065
  6. OLANZAPINE. [Suspect]
     Active Substance: OLANZAPINE
     Indication: NAUSEA
     Dosage: UNK
     Route: 065
  7. OLANZAPINE. [Suspect]
     Active Substance: OLANZAPINE
     Indication: SLEEP DISORDER
     Dosage: 10 MILLIGRAM, ONCE A DAY (BEFORE SLEEP)
     Route: 065
  8. FLUCONAZOLE. [Suspect]
     Active Substance: FLUCONAZOLE
     Indication: ORAL FUNGAL INFECTION
     Dosage: UNK
     Route: 065
  9. MORPHINE [Interacting]
     Active Substance: MORPHINE
     Indication: CERVIX CARCINOMA
  10. FUROSEMIDE. [Interacting]
     Active Substance: FUROSEMIDE
     Dosage: UNK, DOSE INCREASED
     Route: 065
  11. FLUCONAZOLE. [Suspect]
     Active Substance: FLUCONAZOLE
     Indication: ORAL FUNGAL INFECTION
     Dosage: 200 MILLIGRAM, ONCE A DAY
     Route: 048
  12. AMITRIPTYLINE [Interacting]
     Active Substance: AMITRIPTYLINE
     Indication: PAIN
     Dosage: UNK
     Route: 065
  13. AMITRIPTYLINE [Interacting]
     Active Substance: AMITRIPTYLINE
     Indication: CERVIX CARCINOMA
     Dosage: 150 MILLIGRAM, ONCE A DAY
     Route: 065
  14. FUROSEMIDE. [Interacting]
     Active Substance: FUROSEMIDE
     Dosage: 60 MILLIGRAM, ONCE A DAY
     Route: 065
  15. LOW MOLECULAR WEIGHT HEPARIN [Concomitant]
     Active Substance: UNSPECIFIED INGREDIENT
     Indication: PRODUCT USED FOR UNKNOWN INDICATION
     Dosage: UNK, A PROPHYLACTIC DOSE
     Route: 065

REACTIONS (6)
  - Pulmonary embolism [Fatal]
  - Embolism venous [Unknown]
  - Drug interaction [Fatal]
  - Somnolence [Not Recovered/Not Resolved]
  - Disturbance in attention [Unknown]
  - Confusional state [Not Recovered/Not Resolved]
